FAERS Safety Report 12978281 (Version 2)
Quarter: 2016Q4

REPORT INFORMATION
  Report Type: Spontaneous
  Country: US (occurrence: US)
  Receive Date: 20161128
  Receipt Date: 20161206
  Transmission Date: 20170207
  Serious: No
  Sender: FDA-Public Use
  Company Number: US-PFIZER INC-2016540760

PATIENT
  Age: 80 Year
  Sex: Female
  Weight: 69.84 kg

DRUGS (1)
  1. IBRANCE [Suspect]
     Active Substance: PALBOCICLIB
     Indication: BREAST CANCER
     Dosage: 100 MG, CYCLIC, (D1-D21 EVERY 28 DAYS)
     Route: 048
     Dates: start: 20161101

REACTIONS (2)
  - Fatigue [Unknown]
  - Constipation [Unknown]
